FAERS Safety Report 12890488 (Version 1)
Quarter: 2016Q4

REPORT INFORMATION
  Report Type: Spontaneous
  Country: IT (occurrence: IT)
  Receive Date: 20161027
  Receipt Date: 20161027
  Transmission Date: 20170207
  Serious: Yes (Other)
  Sender: FDA-Public Use
  Company Number: IT-MYLANLABS-2016M1045312

PATIENT

DRUGS (4)
  1. PACLITAXEL MYLAN GENERICS 6 MG/ML [Suspect]
     Active Substance: PACLITAXEL
     Indication: BREAST CANCER
     Dosage: 125.6 MG, CYCLE
     Route: 041
     Dates: start: 20161011, end: 20161018
  2. ONDANSETRON KABI [Concomitant]
     Active Substance: ONDANSETRON
     Indication: PREMEDICATION
     Dosage: 8 MG, UNK
     Route: 042
     Dates: start: 20161011, end: 20161018
  3. FLEBOCORTID [Concomitant]
     Active Substance: HYDROCORTISONE SODIUM SUCCINATE
     Indication: PREMEDICATION
     Dosage: 200 MG, UNK
     Route: 042
     Dates: start: 20161011, end: 20161018
  4. TRIMETON [Concomitant]
     Active Substance: CHLORPHENIRAMINE MALEATE
     Indication: PREMEDICATION
     Dosage: 10 MG, UNK
     Route: 042
     Dates: start: 20161011, end: 20161018

REACTIONS (2)
  - Dyspnoea [Recovered/Resolved]
  - Throat tightness [Recovered/Resolved]

NARRATIVE: CASE EVENT DATE: 201610
